FAERS Safety Report 4845796-X (Version None)
Quarter: 2005Q4

REPORT INFORMATION
  Report Type: 
  Country: None (occurrence: None)
  Receive Date: 20051202
  Receipt Date: 20051202
  Transmission Date: 20060501
  Serious: Yes (Hospitalization)
  Sender: FDA-Public Use
  Company Number: None

PATIENT
  Age: 61 Year
  Sex: Female
  Weight: 88 kg

DRUGS (6)
  1. TARKA [Suspect]
     Indication: HYPERTENSION
     Dosage: DAILY
  2. ASPIRIN [Concomitant]
  3. XANAX [Concomitant]
  4. PERCOCET [Concomitant]
  5. MULTI-VITAMIN [Concomitant]
  6. ... [Concomitant]

REACTIONS (1)
  - ANGIONEUROTIC OEDEMA [None]
